FAERS Safety Report 13797079 (Version 1)
Quarter: 2017Q3

REPORT INFORMATION
  Report Type: Not Available
  Country: US (occurrence: US)
  Receive Date: 20170727
  Receipt Date: 20170727
  Transmission Date: 20171127
  Serious: No
  Sender: FDA-Public Use
  Company Number: US-NEUROCRINE BIOSCIENCES INC.-2017NBI00253

PATIENT
  Age: 63 Year
  Sex: Male
  Weight: 131.66 kg

DRUGS (2)
  1. INGREZZA [Suspect]
     Active Substance: VALBENAZINE
     Indication: DYSKINESIA
     Route: 048
     Dates: start: 20170506, end: 20170512
  2. RISPERIDONE. [Concomitant]
     Active Substance: RISPERIDONE
     Indication: MOVEMENT DISORDER

REACTIONS (3)
  - Hyperhidrosis [Unknown]
  - Decreased appetite [Unknown]
  - Feeling cold [Unknown]

NARRATIVE: CASE EVENT DATE: 201705
